FAERS Safety Report 6503889-5 (Version None)
Quarter: 2009Q4

REPORT INFORMATION
  Report Type: 
  Country: None (occurrence: None)
  Receive Date: 20091217
  Receipt Date: 20091206
  Transmission Date: 20100525
  Serious: Yes (Hospitalization, Disabling)
  Sender: FDA-Public Use
  Company Number: B0616312A

PATIENT
  Sex: Male

DRUGS (10)
  1. ROPINIROLE [Suspect]
     Indication: PARKINSON'S DISEASE
     Route: 065
     Dates: start: 20080911, end: 20090128
  2. ROTIGOTINE [Suspect]
     Indication: PARKINSON'S DISEASE
     Dosage: 8MG PER DAY
     Route: 062
     Dates: start: 20090130, end: 20090227
  3. AZILECT [Suspect]
     Indication: PARKINSON'S DISEASE
     Dosage: 1MG PER DAY
     Route: 065
     Dates: start: 20080911, end: 20081118
  4. SIFROL [Suspect]
     Indication: PARKINSON'S DISEASE
     Dosage: .35MG THREE TIMES PER DAY
     Route: 065
     Dates: start: 20090427, end: 20090526
  5. OPIPRAMOL [Concomitant]
     Indication: DEPRESSION
     Route: 065
  6. ASPIRIN [Concomitant]
     Indication: PROPHYLAXIS
     Dosage: 100MG PER DAY
  7. DELIX [Concomitant]
     Indication: HYPERTENSION
     Dosage: 2.5MG PER DAY
  8. METFORMIN HCL [Concomitant]
     Indication: DIABETES MELLITUS
     Route: 065
  9. QUETIAPINE FUMARATE [Concomitant]
     Indication: HALLUCINATION
     Dosage: 50MG TWICE PER DAY
     Route: 065
     Dates: start: 20090203
  10. SEROQUEL [Concomitant]
     Indication: HALLUCINATION
     Dates: start: 20081113

REACTIONS (20)
  - ABNORMAL DREAMS [None]
  - ANXIETY [None]
  - BRADYPHRENIA [None]
  - CHILLS [None]
  - COGNITIVE DISORDER [None]
  - DECREASED ACTIVITY [None]
  - DEPRESSION [None]
  - DIZZINESS [None]
  - DRUG EFFECT DECREASED [None]
  - HALLUCINATION [None]
  - HALLUCINATION, AUDITORY [None]
  - HALLUCINATION, VISUAL [None]
  - MOOD ALTERED [None]
  - NIGHTMARE [None]
  - PARKINSON'S DISEASE [None]
  - PYREXIA [None]
  - RESTLESSNESS [None]
  - SLEEP DISORDER [None]
  - SYNCOPE [None]
  - TREMOR [None]
